FAERS Safety Report 9877980 (Version 2)
Quarter: 2014Q2

REPORT INFORMATION
  Report Type: Spontaneous
  Country: US (occurrence: None)
  Receive Date: 20140204
  Receipt Date: 20140521
  Transmission Date: 20141212
  Serious: Yes (Hospitalization)
  Sender: FDA-Public Use
  Company Number: 2014-US-000967

PATIENT
  Age: 61 Year
  Sex: Female

DRUGS (7)
  1. XYREM (SODIUM OXYBATE) ORAL SOLUTION, 500MG/ML [Suspect]
     Indication: NARCOLEPSY
     Route: 048
     Dates: start: 201202
  2. XYREM (SODIUM OXYBATE) ORAL SOLUTION, 500MG/ML [Suspect]
     Indication: CATAPLEXY
     Route: 048
     Dates: start: 201202
  3. SYMBICORT (BUDESONIDE, FORMOTEROL FUMARATE) [Concomitant]
  4. COREG (CARVEDILOL) [Concomitant]
  5. PLAVIX (CLOPIDOGREL BISULFATE) (CLOPIDOGREL BISULFATE) [Concomitant]
  6. SINGULAIR (MONTELUKAST SODIUM) TABLET [Concomitant]
  7. ALBUTEROL (SALBUTAMOL SULFATE) [Concomitant]

REACTIONS (6)
  - Haemorrhoids [None]
  - Hernia [None]
  - Chest pain [None]
  - Palpitations [None]
  - Peripheral swelling [None]
  - Headache [None]
